FAERS Safety Report 4509882-6 (Version None)
Quarter: 2004Q4

REPORT INFORMATION
  Report Type: 
  Country: None (occurrence: None)
  Receive Date: 20041119
  Receipt Date: 20041105
  Transmission Date: 20050328
  Serious: Yes (Other)
  Sender: FDA-Public Use
  Company Number: EWC041040836

PATIENT
  Age: 45 Year
  Sex: Female
  Weight: 95 kg

DRUGS (6)
  1. VANCOMYCIN [Suspect]
     Indication: CATHETER RELATED INFECTION
     Dosage: 1 G
     Dates: start: 20040821, end: 20040821
  2. PHOS-EX (CALCIUM ACETATE) [Concomitant]
  3. EPOGEN [Concomitant]
  4. CARNITENE (LEVOCARNITINE) [Concomitant]
  5. EPARGRISEOVIT [Concomitant]
  6. FOLBIOL (FOLIC ACID) [Concomitant]

REACTIONS (1)
  - HYPERSENSITIVITY [None]
